FAERS Safety Report 7991122-7 (Version None)
Quarter: 2011Q4

REPORT INFORMATION
  Report Type: 
  Country: None (occurrence: None)
  Receive Date: 20111219
  Receipt Date: 20111207
  Transmission Date: 20120403
  Serious: Yes (Hospitalization)
  Sender: FDA-Public Use
  Company Number: BR-BRISTOL-MYERS SQUIBB COMPANY-16291882

PATIENT
  Age: 27 Year
  Sex: Male

DRUGS (5)
  1. LAMIVUDINE [Concomitant]
     Dosage: INTR ON AUG08 RESTARTED ON JAN09
     Dates: start: 20070901
  2. EFAVIRENZ [Suspect]
     Indication: HIV INFECTION
     Dosage: INTR ON AUG08 RESTARTED ON JAN09.
     Route: 065
     Dates: start: 20070901
  3. AMPHOTERICIN B [Concomitant]
     Dosage: ALSO JAN10
     Route: 042
     Dates: start: 20070901
  4. ZIDOVUDINE [Concomitant]
     Dosage: INTR ON AUG08 RESTARTED ON JAN09
     Dates: start: 20070901
  5. ITRACONAZOLE [Concomitant]
     Dosage: DOSE REDUCED TO 100MG/DAY
     Route: 048
     Dates: start: 20100101

REACTIONS (5)
  - GENERAL PHYSICAL HEALTH DETERIORATION [None]
  - HISTOPLASMOSIS [None]
  - INTERSTITIAL GRANULOMATOUS DERMATITIS [None]
  - THERAPY CESSATION [None]
  - IMMUNE RECONSTITUTION SYNDROME [None]
